FAERS Safety Report 8325112-1 (Version None)
Quarter: 2012Q2

REPORT INFORMATION
  Report Type: 
  Country: None (occurrence: None)
  Receive Date: 20120501
  Receipt Date: 20120423
  Transmission Date: 20120825
  Serious: Yes (Hospitalization)
  Sender: FDA-Public Use
  Company Number: EE-ASTRAZENECA-2012SE26290

PATIENT
  Age: 0 Day
  Sex: Male

DRUGS (1)
  1. SEROQUEL XR [Suspect]
     Indication: SCHIZOAFFECTIVE DISORDER
     Route: 063
     Dates: start: 20110803

REACTIONS (2)
  - DYSPEPSIA [None]
  - EXPOSURE DURING BREAST FEEDING [None]
